FAERS Safety Report 11018499 (Version 2)
Quarter: 2015Q2

REPORT INFORMATION
  Report Type: Spontaneous
  Country: US (occurrence: US)
  Receive Date: 20150412
  Receipt Date: 20150524
  Transmission Date: 20150821
  Serious: Yes (Hospitalization)
  Sender: FDA-Public Use
  Company Number: US-JNJFOC-20130701575

PATIENT
  Age: 72 Year
  Sex: Female

DRUGS (1)
  1. DOXIL [Suspect]
     Active Substance: DOXORUBICIN HYDROCHLORIDE
     Indication: OVARIAN CANCER
     Route: 042
     Dates: start: 2013

REACTIONS (7)
  - Pyrexia [Unknown]
  - Blister [Unknown]
  - Stoma site rash [Not Recovered/Not Resolved]
  - Stomatitis [Recovered/Resolved]
  - Dehydration [Unknown]
  - Genital rash [Recovered/Resolved]
  - Carbohydrate antigen 125 increased [Unknown]

NARRATIVE: CASE EVENT DATE: 2013
